FAERS Safety Report 6417464-4 (Version None)
Quarter: 2009Q4

REPORT INFORMATION
  Report Type: 
  Country: None (occurrence: None)
  Receive Date: 20091028
  Receipt Date: 20091023
  Transmission Date: 20100525
  Serious: Yes (Hospitalization, Other)
  Sender: FDA-Public Use
  Company Number: US-BAYER-200915827BCC

PATIENT
  Age: 79 Year
  Sex: Male
  Weight: 63 kg

DRUGS (14)
  1. ASPIRIN [Suspect]
     Indication: MYOCARDIAL INFARCTION
     Dosage: TOTAL DAILY DOSE: 81 MG  UNIT DOSE: 81 MG
     Route: 048
     Dates: start: 20060101
  2. PLAVIX [Suspect]
     Indication: MYOCARDIAL INFARCTION
     Dosage: TOTAL DAILY DOSE: 75 MG  UNIT DOSE: 75 MG
     Route: 048
     Dates: start: 20061101
  3. PREVACID [Concomitant]
     Dosage: TOTAL DAILY DOSE: 30 MG  UNIT DOSE: 30 MG
     Route: 048
     Dates: start: 20060101
  4. LIPITOR [Concomitant]
     Dosage: TOTAL DAILY DOSE: 20 MG  UNIT DOSE: 20 MG
     Route: 048
     Dates: start: 19990101
  5. TOPROL-XL [Concomitant]
     Dosage: TOTAL DAILY DOSE: 200 MG  UNIT DOSE: 100 MG
     Route: 048
  6. RENVELA [Concomitant]
     Dosage: TOTAL DAILY DOSE: 2400 MG  UNIT DOSE: 800 MG
     Route: 048
     Dates: start: 20060101
  7. ALTACE [Concomitant]
     Dosage: TOTAL DAILY DOSE: 10 MG  UNIT DOSE: 10 MG
     Route: 048
  8. MULTI-VITAMIN [Concomitant]
     Indication: VITAMIN SUPPLEMENTATION
     Route: 048
  9. VITAMIN-MINERAL COMPOUND TAB [Concomitant]
     Route: 048
  10. LUTEIN [Concomitant]
     Route: 065
  11. CARDURA [Concomitant]
     Route: 065
  12. EPOGEN [Concomitant]
     Indication: ANAEMIA
     Route: 065
     Dates: start: 20040101
  13. VITAMIN D [Concomitant]
     Route: 065
  14. CORATIN [Concomitant]
     Indication: DRUG USE FOR UNKNOWN INDICATION
     Route: 065

REACTIONS (6)
  - ANAEMIA [None]
  - ARTERIOVENOUS FISTULA SITE HAEMORRHAGE [None]
  - BLOOD PRESSURE INCREASED [None]
  - HAEMOGLOBIN DECREASED [None]
  - HAEMORRHAGE [None]
  - VENOUS HAEMORRHAGE [None]
